FAERS Safety Report 7403437-1 (Version None)
Quarter: 2011Q2

REPORT INFORMATION
  Report Type: 
  Country: None (occurrence: None)
  Receive Date: 20110408
  Receipt Date: 20110401
  Transmission Date: 20111010
  Serious: Yes (Other)
  Sender: FDA-Public Use
  Company Number: A0921095A

PATIENT
  Age: 60 Year
  Sex: Female

DRUGS (2)
  1. SALINE NASAL SPRAY [Concomitant]
  2. VERAMYST [Suspect]
     Route: 045

REACTIONS (3)
  - NASAL ULCER [None]
  - ERYTHEMA [None]
  - NASAL SEPTUM PERFORATION [None]
